FAERS Safety Report 7154459 (Version 3)
Quarter: 2012Q4

REPORT INFORMATION
  Report Type: 
  Country: US (occurrence: None)
  Receive Date: 20091007
  Receipt Date: 20120912
  Transmission Date: 20130627
  Serious: Yes (Death, Hospitalization, Other)
  Sender: FDA-Public Use
  Company Number: 2009AP003879

PATIENT
  Age: 67 Year
  Sex: Female

DRUGS (1)
  1. AMIODARONE HYDROCHLORIDE [Suspect]

REACTIONS (7)
  - Hepatic cirrhosis [None]
  - Toxicity to various agents [None]
  - Ascites [None]
  - Asterixis [None]
  - Cardiopulmonary failure [None]
  - Confusional state [None]
  - Hepatic fibrosis [None]
